FAERS Safety Report 10034502 (Version 1)
Quarter: 2014Q1

REPORT INFORMATION
  Report Type: Spontaneous
  Country: US (occurrence: None)
  Receive Date: 20140321
  Receipt Date: 20140321
  Transmission Date: 20141002
  Serious: Yes (Hospitalization)
  Sender: FDA-Public Use
  Company Number: UTC-045754

PATIENT
  Age: 63 Year
  Sex: Female

DRUGS (1)
  1. REMODULIN [Suspect]
     Indication: PULMONARY ARTERIAL HYPERTENSION
     Dosage: (0.012 UG/KG, 1)
     Route: 041
     Dates: start: 20110224

REACTIONS (2)
  - Device breakage [None]
  - Pulmonary oedema [None]
